FAERS Safety Report 11895215 (Version 2)
Quarter: 2016Q1

REPORT INFORMATION
  Report Type: Spontaneous
  Country: US (occurrence: US)
  Receive Date: 20160107
  Receipt Date: 20160127
  Transmission Date: 20160526
  Serious: No
  Sender: FDA-Public Use
  Company Number: US-PFIZER INC-2015456230

PATIENT
  Age: 68 Year
  Sex: Female
  Weight: 88.9 kg

DRUGS (1)
  1. XANAX [Suspect]
     Active Substance: ALPRAZOLAM
     Indication: ANXIETY
     Dosage: 0.5MG, ONE IN MORNING AND ONE IN EVENING, EXTRA ONE AS NEEDED FOR AN ANXIETY ATTACK DURING THE DAY
     Dates: end: 201502

REACTIONS (1)
  - Drug effect decreased [Recovered/Resolved]
